FAERS Safety Report 6749692-2 (Version None)
Quarter: 2010Q2

REPORT INFORMATION
  Report Type: 
  Country: None (occurrence: None)
  Receive Date: 20100601
  Receipt Date: 20100520
  Transmission Date: 20101027
  Serious: Yes (Hospitalization)
  Sender: FDA-Public Use
  Company Number: NL-ASTRAZENECA-2010SE23383

PATIENT
  Age: 48 Year
  Sex: Male
  Weight: 85 kg

DRUGS (2)
  1. SEROQUEL [Suspect]
     Indication: SLEEP DISORDER
     Route: 048
     Dates: start: 20100301, end: 20100510
  2. PREDNISOLON SANDOZ [Concomitant]
     Route: 048
     Dates: start: 20000101

REACTIONS (2)
  - GRANULOCYTOPENIA [None]
  - LEUKOPENIA [None]
